FAERS Safety Report 9030572 (Version 1)
Quarter: 2013Q1

REPORT INFORMATION
  Report Type: Spontaneous
  Country: US (occurrence: US)
  Receive Date: 20130122
  Receipt Date: 20130122
  Transmission Date: 20140127
  Serious: No
  Sender: FDA-Public Use
  Company Number: US-MYLANLABS-2012S1026473

PATIENT
  Age: 71 Year
  Sex: Male

DRUGS (5)
  1. UROXATRAL [Suspect]
     Indication: DYSURIA
     Route: 048
     Dates: end: 20121222
  2. ALFUZOSIN HYDROCHLORIDE ER [Suspect]
     Indication: DYSURIA
     Route: 048
     Dates: start: 20121214, end: 20121222
  3. LISINOPRIL [Concomitant]
     Indication: BLOOD PRESSURE INCREASED
  4. FENTANYL [Concomitant]
     Indication: PAIN IN EXTREMITY
     Dosage: Q72H
     Route: 062
  5. AMBIEN [Concomitant]
     Indication: INSOMNIA

REACTIONS (5)
  - Pain in extremity [Recovered/Resolved]
  - Local swelling [Recovered/Resolved]
  - Infection [Not Recovered/Not Resolved]
  - Drug administration error [Recovered/Resolved]
  - Therapy change [Recovered/Resolved]
